FAERS Safety Report 4338597-2 (Version None)
Quarter: 2004Q2

REPORT INFORMATION
  Report Type: 
  Country: None (occurrence: None)
  Receive Date: 20040409
  Receipt Date: 20040401
  Transmission Date: 20050107
  Serious: Yes (Hospitalization)
  Sender: FDA-Public Use
  Company Number: 04P-153-0255890-00

PATIENT

DRUGS (1)
  1. SEVOFLURANE [Suspect]
     Indication: LOCAL ANAESTHESIA
     Dosage: INHALATION

REACTIONS (2)
  - ASTHMA [None]
  - POST PROCEDURAL COMPLICATION [None]
